FAERS Safety Report 4461313-0 (Version None)
Quarter: 2004Q3

REPORT INFORMATION
  Report Type: 
  Country: None (occurrence: None)
  Receive Date: 20040928
  Receipt Date: 20040917
  Transmission Date: 20050211
  Serious: Yes (Other)
  Sender: FDA-Public Use
  Company Number: CH-GLAXOSMITHKLINE-B0346244A

PATIENT
  Age: 76 Year
  Sex: Male

DRUGS (2)
  1. DEROXAT [Suspect]
     Dosage: 20MG PER DAY
     Route: 048
     Dates: start: 20040801, end: 20040901
  2. PRADIF [Concomitant]
     Indication: BENIGN PROSTATIC HYPERPLASIA
     Dosage: 400MG PER DAY
     Route: 048
     Dates: start: 20040101

REACTIONS (1)
  - URINARY RETENTION [None]
